FAERS Safety Report 15165406 (Version 2)
Quarter: 2018Q4

REPORT INFORMATION
  Report Type: Spontaneous
  Country: US (occurrence: US)
  Receive Date: 20180719
  Receipt Date: 20181128
  Transmission Date: 20190204
  Serious: Yes (Hospitalization)
  Sender: FDA-Public Use
  Company Number: US-MYLANLABS-2018M1047022

PATIENT
  Age: 64 Year
  Sex: Female

DRUGS (2)
  1. BUPRENORPHINE. [Suspect]
     Active Substance: BUPRENORPHINE
     Indication: DRUG DEPENDENCE
     Dosage: UNK
     Route: 060
  2. BUPRENORPHINE. [Suspect]
     Active Substance: BUPRENORPHINE
     Indication: PAIN

REACTIONS (6)
  - Pulmonary hypertension [Recovering/Resolving]
  - Swollen tongue [Unknown]
  - Off label use [Unknown]
  - Dyspnoea [Unknown]
  - Presyncope [Unknown]
  - Pharyngeal oedema [Unknown]

NARRATIVE: CASE EVENT DATE: 20180716
